FAERS Safety Report 9729897 (Version 1)
Quarter: 2013Q4

REPORT INFORMATION
  Report Type: Spontaneous
  Country: CH (occurrence: None)
  Receive Date: 20131203
  Receipt Date: 20131203
  Transmission Date: 20140711
  Serious: Yes (Other)
  Sender: FDA-Public Use
  Company Number: SYM-2013-13521

PATIENT
  Age: 26 Year
  Sex: Female

DRUGS (6)
  1. FLAGYL [Suspect]
     Indication: PRODUCT USED FOR UNKNOWN INDICATION
     Dates: start: 20121109, end: 20121111
  2. REMICADE (INFLIXIMAB) [Suspect]
     Indication: CROHN^S DISEASE
     Dosage: 300 MG, ONCE EVERY SIX WEEKS
     Dates: end: 201212
  3. TOPLEXIL [Suspect]
     Indication: PRODUCT USED FOR UNKNOWN INDICATION
     Dates: start: 201302, end: 201302
  4. TRIOFAN [Suspect]
     Indication: PRODUCT USED FOR UNKNOWN INDICATION
     Dates: start: 201302, end: 201302
  5. FERINJECT (FERRIC CARBOXYMALTOSE) (FERRIC CARBOXYMALTOSE) [Concomitant]
  6. MALTOFER (FERRIC HYDROXIDE POLYMALTOSE COMPLEX) (FERRIC HYDROXIDE POLYMALTOSE COMPLEX) [Concomitant]

REACTIONS (2)
  - Exposure during pregnancy [None]
  - No adverse event [None]
